FAERS Safety Report 16794142 (Version 1)
Quarter: 2019Q3

REPORT INFORMATION
  Report Type: Spontaneous
  Country: US (occurrence: US)
  Receive Date: 20190911
  Receipt Date: 20190911
  Transmission Date: 20191005
  Serious: Yes (Life-Threatening, Hospitalization, Other)
  Sender: FDA-Public Use
  Company Number: US-ACCORD-154590

PATIENT
  Age: 68 Year
  Sex: Female

DRUGS (4)
  1. BENZATROPINE [Concomitant]
     Active Substance: BENZTROPINE
  2. CLONAZEPAM. [Concomitant]
     Active Substance: CLONAZEPAM
     Dosage: EVERY NIGHT AT BEDTIME
  3. CLOZAPINE. [Suspect]
     Active Substance: CLOZAPINE
     Indication: SCHIZOPHRENIA
  4. HALDOL [Concomitant]
     Active Substance: HALOPERIDOL

REACTIONS (5)
  - Acute myocardial infarction [Recovered/Resolved]
  - Pulmonary oedema [Recovered/Resolved]
  - Respiratory failure [Recovered/Resolved]
  - Cardiogenic shock [Recovered/Resolved]
  - Mental disorder [Recovered/Resolved]
